FAERS Safety Report 24725850 (Version 1)
Quarter: 2024Q4

REPORT INFORMATION
  Report Type: Spontaneous
  Country: PL (occurrence: PL)
  Receive Date: 20241212
  Receipt Date: 20241212
  Transmission Date: 20250115
  Serious: Yes (Other)
  Sender: AUROBINDO
  Company Number: PL-ZENTIVA-2024-ZT-013240

PATIENT
  Sex: Female

DRUGS (4)
  1. BENDAMUSTINE [Suspect]
     Active Substance: BENDAMUSTINE
     Indication: Plasma cell myeloma
     Dosage: UNK
     Route: 065
  2. POMALIDOMIDE [Suspect]
     Active Substance: POMALIDOMIDE
     Indication: Product used for unknown indication
     Dosage: UNK
     Route: 065
  3. ELOTUZUMAB [Suspect]
     Active Substance: ELOTUZUMAB
     Indication: Product used for unknown indication
     Dosage: UNK
     Route: 065
  4. PREDNISONE [Suspect]
     Active Substance: PREDNISONE
     Indication: Plasma cell myeloma
     Dosage: UNK
     Route: 065

REACTIONS (5)
  - Plasma cell myeloma [Unknown]
  - Neoplasm skin [Unknown]
  - Metastases to pancreas [Unknown]
  - Drug resistance [Unknown]
  - Bone lesion [Unknown]
